FAERS Safety Report 5359519-1 (Version None)
Quarter: 2007Q2

REPORT INFORMATION
  Report Type: 
  Country: None (occurrence: None)
  Receive Date: 20070615
  Receipt Date: 20070604
  Transmission Date: 20071010
  Serious: Yes (Other)
  Sender: FDA-Public Use
  Company Number: US-PFIZER INC-2007046896

PATIENT
  Sex: Female
  Weight: 63.636 kg

DRUGS (6)
  1. CHANTIX [Suspect]
     Indication: EMPHYSEMA
  2. ALL OTHER THERAPEUTIC PRODUCTS [Concomitant]
     Indication: ARTHRITIS
  3. LEXAPRO [Concomitant]
  4. NEXIUM [Concomitant]
     Indication: GASTROOESOPHAGEAL REFLUX DISEASE
  5. DYAZIDE [Concomitant]
  6. MULTIVITAMIN [Concomitant]

REACTIONS (6)
  - FEELING ABNORMAL [None]
  - HEADACHE [None]
  - MALAISE [None]
  - NAUSEA [None]
  - RETCHING [None]
  - SLEEP DISORDER [None]
